FAERS Safety Report 4624408-4 (Version None)
Quarter: 2005Q1

REPORT INFORMATION
  Report Type: 
  Country: None (occurrence: None)
  Receive Date: 20050330
  Receipt Date: 20050330
  Transmission Date: 20050727
  Serious: Yes (Hospitalization)
  Sender: FDA-Public Use
  Company Number: None

PATIENT
  Age: 61 Year
  Sex: Male
  Weight: 109 kg

DRUGS (2)
  1. DILTIAZEM [Suspect]
     Dosage: DAILY    ORAL
     Route: 048
  2. METOPROLOL TARTRATE [Suspect]
     Dosage: DAILY    ORAL
     Route: 048

REACTIONS (1)
  - MEDICATION ERROR [None]
